FAERS Safety Report 13375922 (Version 1)
Quarter: 2017Q1

REPORT INFORMATION
  Report Type: Report from Study
  Country: US (occurrence: US)
  Receive Date: 20170328
  Receipt Date: 20170328
  Transmission Date: 20170429
  Serious: Yes (Hospitalization)
  Sender: FDA-Public Use
  Company Number: US-ACTELION-A-US2015-123934

PATIENT
  Age: 64 Year
  Sex: Female

DRUGS (6)
  1. BUPROPION. [Concomitant]
     Active Substance: BUPROPION
  2. DIGOX [Concomitant]
     Active Substance: DIGOXIN
  3. TRACLEER [Suspect]
     Active Substance: BOSENTAN
     Indication: PULMONARY ARTERIAL HYPERTENSION
     Dosage: 125 MG, BID
     Route: 048
     Dates: start: 20120210
  4. METOLAZONE. [Concomitant]
     Active Substance: METOLAZONE
  5. TRACLEER [Suspect]
     Active Substance: BOSENTAN
     Dosage: UNK
     Route: 048
  6. TORSEMIDE. [Concomitant]
     Active Substance: TORSEMIDE

REACTIONS (9)
  - Urinary tract infection [Recovered/Resolved]
  - Toe amputation [Not Recovered/Not Resolved]
  - Osteomyelitis [Not Recovered/Not Resolved]
  - Infection [Recovered/Resolved]
  - Cardiac failure congestive [Not Recovered/Not Resolved]
  - Sepsis [Recovered/Resolved]
  - Atrial fibrillation [Unknown]
  - Diabetes mellitus [Unknown]
  - Arrhythmia [Recovered/Resolved]

NARRATIVE: CASE EVENT DATE: 20151201
